FAERS Safety Report 23024323 (Version 4)
Quarter: 2024Q1

REPORT INFORMATION
  Report Type: Report from Study
  Country: US (occurrence: US)
  Receive Date: 20231004
  Receipt Date: 20240107
  Transmission Date: 20240410
  Serious: No
  Sender: FDA-Public Use
  Company Number: US-002147023-NVSC2023US208390

PATIENT
  Age: 69 Year
  Sex: Male

DRUGS (1)
  1. COSENTYX [Suspect]
     Active Substance: SECUKINUMAB
     Indication: Product used for unknown indication
     Dosage: 300 MG/KG, QMO
     Route: 065
     Dates: start: 20220306, end: 20230925

REACTIONS (2)
  - Device malfunction [Recovered/Resolved with Sequelae]
  - Incorrect dose administered by device [Recovered/Resolved with Sequelae]

NARRATIVE: CASE EVENT DATE: 20230925
